FAERS Safety Report 4953724-1 (Version None)
Quarter: 2006Q1

REPORT INFORMATION
  Report Type: 
  Country: None (occurrence: None)
  Receive Date: 20060323
  Receipt Date: 20060323
  Transmission Date: 20060701
  Serious: Yes (Hospitalization)
  Sender: FDA-Public Use
  Company Number: None

PATIENT
  Age: 58 Year
  Sex: Male
  Weight: 88.4514 kg

DRUGS (10)
  1. PRAMIPEXOLE   0.5MG [Suspect]
     Indication: RESTLESS LEGS SYNDROME
     Dosage: 0.5 MG DAILY X 7 DAYS PO; 0.5 MG BID PO
     Route: 048
     Dates: start: 20060318, end: 20060320
  2. CLOPIDOGREL [Concomitant]
  3. ASPIRIN [Concomitant]
  4. CITALOPRAM HYDROBROMIDE [Concomitant]
  5. GLYBURIDE [Concomitant]
  6. VENLAFAXINE HCL [Concomitant]
  7. LISINOPRIL [Concomitant]
  8. SIMVASTATIN [Concomitant]
  9. HYDROCHLOROTOTHIAZIDE [Concomitant]
  10. PRAMIPEXOLE DIHYDROCHLORIDE [Concomitant]

REACTIONS (10)
  - ASTHENIA [None]
  - CHEST DISCOMFORT [None]
  - CHEST PAIN [None]
  - DIZZINESS [None]
  - HEADACHE [None]
  - HYPERHIDROSIS [None]
  - NAUSEA [None]
  - PALLOR [None]
  - SNEEZING [None]
  - VISION BLURRED [None]
